FAERS Safety Report 4999725-9 (Version None)
Quarter: 2006Q2

REPORT INFORMATION
  Report Type: 
  Country: None (occurrence: None)
  Receive Date: 20060511
  Receipt Date: 20060503
  Transmission Date: 20061013
  Serious: Yes (Other)
  Sender: FDA-Public Use
  Company Number: US-JNJFOC-20060500965

PATIENT
  Sex: Female
  Weight: 99.79 kg

DRUGS (3)
  1. REMICADE [Suspect]
     Indication: RHEUMATOID ARTHRITIS
     Route: 042
  2. MOTRIN [Concomitant]
  3. UNSPECIFIED EYE DROPS [Concomitant]
     Indication: GLAUCOMA

REACTIONS (8)
  - BACK PAIN [None]
  - CHILLS [None]
  - HEADACHE [None]
  - HYPERSENSITIVITY [None]
  - PAIN IN EXTREMITY [None]
  - PYREXIA [None]
  - SPINAL FUSION SURGERY [None]
  - WHEEZING [None]
